FAERS Safety Report 6007123-4 (Version None)
Quarter: 2008Q4

REPORT INFORMATION
  Report Type: 
  Country: None (occurrence: None)
  Receive Date: 20081217
  Receipt Date: 20080124
  Transmission Date: 20090506
  Serious: No
  Sender: FDA-Public Use
  Company Number: US-ASTRAZENECA-2008UW01672

PATIENT
  Sex: Male

DRUGS (3)
  1. CRESTOR [Suspect]
  2. ZETIA [Concomitant]
  3. ANTI-PSYCHOTIC [Concomitant]

REACTIONS (1)
  - GLOMERULAR FILTRATION RATE DECREASED [None]
